FAERS Safety Report 8900687 (Version 1)
Quarter: 2012Q4

REPORT INFORMATION
  Report Type: 
  Country: AU (occurrence: AU)
  Receive Date: 20121109
  Receipt Date: 20121109
  Transmission Date: 20130627
  Serious: Yes (Other)
  Sender: FDA-Public Use
  Company Number: AU-PFIZER INC-2012275164

PATIENT
  Age: 36 Year
  Sex: Female

DRUGS (3)
  1. ETHINYL ESTRADIOL\LEVONORGESTREL [Suspect]
     Indication: MENSTRUAL CYCLE MANAGEMENT
     Dosage: UNK
  2. VITAMIN D [Concomitant]
  3. INNER HEALTH POWDER [Concomitant]

REACTIONS (2)
  - Hernia [Unknown]
  - Drug dose omission [None]
